FAERS Safety Report 12084539 (Version 3)
Quarter: 2016Q1

REPORT INFORMATION
  Report Type: Spontaneous
  Country: BR (occurrence: BR)
  Receive Date: 20160217
  Receipt Date: 20160307
  Transmission Date: 20160526
  Serious: Yes (Hospitalization, Other)
  Sender: FDA-Public Use
  Company Number: BR-PFIZER INC-2016093715

PATIENT
  Age: 68 Year
  Sex: Female

DRUGS (3)
  1. EFFEXOR XR [Suspect]
     Active Substance: VENLAFAXINE HYDROCHLORIDE
     Indication: ANXIETY
     Dosage: 112.5 MG, UNSPECIFIED FREQUENCY
     Route: 048
     Dates: start: 201510
  2. EFFEXOR XR [Suspect]
     Active Substance: VENLAFAXINE HYDROCHLORIDE
     Indication: DEPRESSION
     Dosage: 75 MG, UNSPECIFIED FREQUENCY
     Route: 048
     Dates: start: 2015
  3. EFFEXOR XR [Suspect]
     Active Substance: VENLAFAXINE HYDROCHLORIDE
     Dosage: 150 MG, CUT THE CAPSULE IN HALF AND TOOK HALF

REACTIONS (13)
  - Memory impairment [Recovering/Resolving]
  - Fear [Not Recovered/Not Resolved]
  - Intentional product misuse [Recovered/Resolved]
  - Transient global amnesia [Recovered/Resolved]
  - Hypertension [Not Recovered/Not Resolved]
  - Agitation [Not Recovered/Not Resolved]
  - Confusional state [Unknown]
  - Loss of consciousness [Recovered/Resolved]
  - Intentional product use issue [Recovered/Resolved]
  - Diabetes mellitus [Not Recovered/Not Resolved]
  - Malaise [Recovered/Resolved]
  - Repetitive speech [Unknown]
  - Disorientation [Not Recovered/Not Resolved]

NARRATIVE: CASE EVENT DATE: 201601
